FAERS Safety Report 20733187 (Version 1)
Quarter: 2022Q2

REPORT INFORMATION
  Report Type: Spontaneous
  Country: None (occurrence: US)
  Receive Date: 20220421
  Receipt Date: 20220421
  Transmission Date: 20220721
  Serious: Yes (Life-Threatening, Hospitalization, Other)
  Sender: FDA-Public Use
  Company Number: US-Oxford Pharmaceuticals, LLC-2128002

PATIENT
  Age: 58 Year
  Sex: Female

DRUGS (1)
  1. BACLOFEN [Suspect]
     Active Substance: BACLOFEN
     Indication: Product used for unknown indication
     Route: 048

REACTIONS (13)
  - Respiratory distress [Unknown]
  - Hallucination, visual [Unknown]
  - Hyperpyrexia [Unknown]
  - Clonus [Unknown]
  - Tremor [Unknown]
  - Somnolence [Unknown]
  - Drug withdrawal syndrome [Unknown]
  - Muscle rigidity [Unknown]
  - Tachycardia [Unknown]
  - Hypertension [Unknown]
  - Tachypnoea [Unknown]
  - Muscle strength abnormal [Unknown]
  - Sensory loss [Unknown]
